FAERS Safety Report 23904432 (Version 2)
Quarter: 2024Q4

REPORT INFORMATION
  Report Type: Spontaneous
  Country: FR (occurrence: FR)
  Receive Date: 20240527
  Receipt Date: 20241101
  Transmission Date: 20250115
  Serious: Yes (Other)
  Sender: PFIZER
  Company Number: FR-PFIZER INC-PV202400067754

PATIENT
  Age: 12 Year
  Sex: Female
  Weight: 42 kg

DRUGS (6)
  1. VORICONAZOLE [Interacting]
     Active Substance: VORICONAZOLE
     Indication: Disseminated trichosporonosis
     Dosage: 300 MG, 2X/DAY, (14 MG/KG/DAY)
     Dates: start: 201709
  2. VORICONAZOLE [Interacting]
     Active Substance: VORICONAZOLE
     Dosage: 500 MG, 2X/DAY
  3. VORICONAZOLE [Interacting]
     Active Substance: VORICONAZOLE
     Dosage: 400 MG, 2X/DAY
  4. VORICONAZOLE [Interacting]
     Active Substance: VORICONAZOLE
     Dosage: 200 MG, 2X/DAY
  5. VORICONAZOLE [Interacting]
     Active Substance: VORICONAZOLE
     Dosage: 440 MG, 2X/DAY
  6. MIDAZOLAM [Interacting]
     Active Substance: MIDAZOLAM
     Indication: Sedation

REACTIONS (5)
  - Overdose [Unknown]
  - Drug interaction [Unknown]
  - Hepatic cytolysis [Recovering/Resolving]
  - Cholestasis [Recovering/Resolving]
  - Off label use [Unknown]
